FAERS Safety Report 25139411 (Version 1)
Quarter: 2025Q1

REPORT INFORMATION
  Report Type: Spontaneous
  Country: JP (occurrence: JP)
  Receive Date: 20250331
  Receipt Date: 20250331
  Transmission Date: 20250409
  Serious: Yes (Death, Hospitalization, Other)
  Sender: UNICHEM
  Company Number: JP-UNICHEM LABORATORIES LIMITED-UNI-2025-JP-001652

PATIENT

DRUGS (1)
  1. METRONIDAZOLE [Suspect]
     Active Substance: METRONIDAZOLE
     Indication: Liver abscess
     Route: 048

REACTIONS (7)
  - Hepatic cirrhosis [Fatal]
  - Bacteraemia [Fatal]
  - Bacterial infection [Unknown]
  - Venous thrombosis [Unknown]
  - Mobility decreased [Unknown]
  - Aphasia [Unknown]
  - Encephalopathy [Unknown]
